FAERS Safety Report 25302657 (Version 1)
Quarter: 2025Q2

REPORT INFORMATION
  Report Type: Spontaneous
  Country: FR (occurrence: FR)
  Receive Date: 20250512
  Receipt Date: 20250512
  Transmission Date: 20250717
  Serious: Yes (Hospitalization)
  Sender: SANDOZ
  Company Number: None

PATIENT
  Age: 80 Year
  Sex: Female
  Weight: 72 kg

DRUGS (1)
  1. ZOMETA [Suspect]
     Active Substance: ZOLEDRONIC ACID
     Indication: Osteopathic treatment
     Route: 065
     Dates: start: 20250310, end: 20250310

REACTIONS (1)
  - Chondrocalcinosis [Unknown]

NARRATIVE: CASE EVENT DATE: 20250311
